FAERS Safety Report 9072459 (Version 1)
Quarter: 2013Q1

REPORT INFORMATION
  Report Type: Spontaneous
  Country: FR (occurrence: FR)
  Receive Date: 20130207
  Receipt Date: 20130207
  Transmission Date: 20140127
  Serious: Yes (Other)
  Sender: FDA-Public Use
  Company Number: FR-PFIZER INC-2013047973

PATIENT
  Age: 80 Year
  Sex: Female

DRUGS (1)
  1. XALKORI [Suspect]
     Dosage: 250 MG, 2X/DAY

REACTIONS (1)
  - Haemorrhagic stroke [Unknown]
